FAERS Safety Report 10190859 (Version 1)
Quarter: 2014Q2

REPORT INFORMATION
  Report Type: Spontaneous
  Country: US (occurrence: None)
  Receive Date: 20140521
  Receipt Date: 20140521
  Transmission Date: 20141212
  Serious: No
  Sender: FDA-Public Use
  Company Number: None

PATIENT
  Age: 4 Year
  Sex: Female
  Weight: 17.69 kg

DRUGS (1)
  1. VERSED [Suspect]

REACTIONS (3)
  - Crying [None]
  - Screaming [None]
  - Abnormal behaviour [None]
